FAERS Safety Report 6587816-0 (Version None)
Quarter: 2010Q1

REPORT INFORMATION
  Report Type: 
  Country: None (occurrence: None)
  Receive Date: 20100218
  Receipt Date: 20100215
  Transmission Date: 20100710
  Serious: Yes (Death, Hospitalization)
  Sender: FDA-Public Use
  Company Number: PHHY2009US54434

PATIENT
  Sex: Male
  Weight: 55 kg

DRUGS (8)
  1. EXJADE [Suspect]
     Indication: LYMPHATIC DISORDER
     Dosage: 500 MG, BID
     Route: 048
     Dates: start: 20091202
  2. EXJADE [Suspect]
     Indication: MYELODYSPLASTIC SYNDROME
  3. SIMVASTATIN [Concomitant]
  4. PHENAZOPYRIDINE HCL TAB [Concomitant]
  5. PRILOSEC [Concomitant]
  6. EFFEXOR [Concomitant]
  7. AMIODARONE HCL [Concomitant]
  8. FLOMAX [Concomitant]

REACTIONS (5)
  - CHILLS [None]
  - DEATH [None]
  - PNEUMONIA [None]
  - PYREXIA [None]
  - VOMITING [None]
